FAERS Safety Report 16571132 (Version 1)
Quarter: 2019Q3

REPORT INFORMATION
  Report Type: Spontaneous
  Country: FR (occurrence: FR)
  Receive Date: 20190715
  Receipt Date: 20190715
  Transmission Date: 20191004
  Serious: Yes (Hospitalization, Other)
  Sender: FDA-Public Use
  Company Number: FR-SA-2019SA188367

PATIENT
  Age: 29 Year
  Sex: Female
  Weight: 92 kg

DRUGS (4)
  1. CLOMID [Suspect]
     Active Substance: CLOMIPHENE CITRATE
     Indication: INFERTILITY
     Route: 048
  2. ALDOMET [Concomitant]
     Active Substance: METHYLDOPA
  3. STRESAM [Concomitant]
     Active Substance: ETIFOXINE
  4. DUPHASTON [Suspect]
     Active Substance: DYDROGESTERONE
     Indication: INFERTILITY
     Dosage: UNK
     Route: 048

REACTIONS (1)
  - Tubulointerstitial nephritis and uveitis syndrome [Recovering/Resolving]

NARRATIVE: CASE EVENT DATE: 201902
